FAERS Safety Report 10591030 (Version 3)
Quarter: 2015Q3

REPORT INFORMATION
  Report Type: Report from Study
  Country: JP (occurrence: JP)
  Receive Date: 20141118
  Receipt Date: 20150713
  Transmission Date: 20151125
  Serious: Yes (Other)
  Sender: FDA-Public Use
  Company Number: JP-JNJFOC-20141108264

PATIENT
  Age: 67 Year
  Sex: Female
  Weight: 52 kg

DRUGS (6)
  1. PEGASYS [Concomitant]
     Active Substance: PEGINTERFERON ALFA-2A
     Indication: CHRONIC HEPATITIS C
     Route: 058
     Dates: start: 20140416, end: 20141001
  2. RIBAVIRIN. [Suspect]
     Active Substance: RIBAVIRIN
     Indication: CHRONIC HEPATITIS C
     Route: 048
     Dates: start: 20140611, end: 20141001
  3. SOVRIAD [Suspect]
     Active Substance: SIMEPREVIR
     Indication: CHRONIC HEPATITIS C
     Route: 048
     Dates: start: 20140416, end: 20140708
  4. URSO [Concomitant]
     Active Substance: URSODIOL
     Indication: CHRONIC HEPATITIS C
     Route: 048
     Dates: start: 20100224
  5. THYRADIN S [Concomitant]
     Active Substance: LEVOTHYROXINE SODIUM
     Indication: HYPOTHYROIDISM
     Route: 048
     Dates: start: 20110323
  6. RIBAVIRIN. [Suspect]
     Active Substance: RIBAVIRIN
     Indication: CHRONIC HEPATITIS C
     Route: 048
     Dates: start: 20140416, end: 20140610

REACTIONS (1)
  - Anaemia [Not Recovered/Not Resolved]

NARRATIVE: CASE EVENT DATE: 20140611
